FAERS Safety Report 17649255 (Version 1)
Quarter: 2020Q2

REPORT INFORMATION
  Report Type: Spontaneous
  Country: FR (occurrence: FR)
  Receive Date: 20200409
  Receipt Date: 20200409
  Transmission Date: 20200713
  Serious: Yes (Other)
  Sender: FDA-Public Use
  Company Number: FR-TEVA-2020-FR-1220888

PATIENT
  Age: 60 Year
  Sex: Male

DRUGS (3)
  1. ADCETRIS [Concomitant]
     Active Substance: BRENTUXIMAB VEDOTIN
     Indication: LYMPHOMA
     Route: 042
     Dates: start: 20200316, end: 20200316
  2. CARBOPLATINE [Concomitant]
     Active Substance: CARBOPLATIN
     Indication: LYMPHOMA
     Route: 042
     Dates: start: 20200317, end: 20200317
  3. ETOPOSIDE. [Suspect]
     Active Substance: ETOPOSIDE
     Indication: LYMPHOMA
     Route: 042
     Dates: start: 20200316, end: 20200318

REACTIONS (2)
  - Erythrosis [Recovered/Resolved]
  - Eye oedema [Recovered/Resolved]

NARRATIVE: CASE EVENT DATE: 20200318
